FAERS Safety Report 6976702-X (Version None)
Quarter: 2010Q3

REPORT INFORMATION
  Report Type: 
  Country: None (occurrence: None)
  Receive Date: 20100910
  Receipt Date: 20090428
  Transmission Date: 20110219
  Serious: No
  Sender: FDA-Public Use
  Company Number: US-WYE-H09229909

PATIENT
  Age: 40 Year
  Sex: Female

DRUGS (6)
  1. PRISTIQ [Suspect]
     Indication: DEPRESSION
     Route: 048
     Dates: start: 20090328
  2. CYMBALTA [Suspect]
     Indication: DEPRESSION
     Route: 048
     Dates: start: 20060101, end: 20090327
  3. LISDEXAMFETAMINE DIMESYLATE (VYVANSE) [Concomitant]
  4. VITAMIN B COMPLEX CAP [Concomitant]
  5. SUBOXONE [Concomitant]
  6. PROTONIX [Concomitant]

REACTIONS (3)
  - BLISTER [None]
  - DRUG WITHDRAWAL SYNDROME [None]
  - ELECTRIC SHOCK [None]
